FAERS Safety Report 13607821 (Version 1)
Quarter: 2017Q2

REPORT INFORMATION
  Report Type: Spontaneous
  Country: GB (occurrence: GB)
  Receive Date: 20170602
  Receipt Date: 20170602
  Transmission Date: 20170830
  Serious: Yes (Other)
  Sender: FDA-Public Use
  Company Number: GB-CANTON LABORATORIES, LLC-2021484

PATIENT
  Age: 47 Year
  Sex: Female
  Weight: 62 kg

DRUGS (1)
  1. NAPROSYN [Suspect]
     Active Substance: NAPROXEN
     Indication: HEADACHE
     Route: 048
     Dates: start: 20170508, end: 20170509

REACTIONS (4)
  - Headache [Recovering/Resolving]
  - Flatulence [Recovering/Resolving]
  - Abdominal discomfort [Recovering/Resolving]
  - Dizziness [Recovering/Resolving]

NARRATIVE: CASE EVENT DATE: 20170508
